FAERS Safety Report 14223722 (Version 2)
Quarter: 2018Q1

REPORT INFORMATION
  Report Type: Spontaneous
  Country: IT (occurrence: IT)
  Receive Date: 20171125
  Receipt Date: 20180326
  Transmission Date: 20180508
  Serious: Yes (Hospitalization)
  Sender: FDA-Public Use
  Company Number: IT-ACCORD-061318

PATIENT
  Sex: Female

DRUGS (4)
  1. AMLODIPINE PFIZER ITALIA [Concomitant]
     Indication: HYPERTENSION
  2. ENAPREN [Concomitant]
     Active Substance: ENALAPRIL MALEATE
     Indication: HYPERTENSION
  3. CAPECITABINE ACCORD [Suspect]
     Active Substance: CAPECITABINE
     Indication: NEOPLASM MALIGNANT
  4. BRIVIRAC [Suspect]
     Active Substance: BRIVUDINE
     Indication: HERPES ZOSTER

REACTIONS (2)
  - Labelled drug-food interaction medication error [Unknown]
  - Pancytopenia [Unknown]
